FAERS Safety Report 8651249 (Version 3)
Quarter: 2012Q4

REPORT INFORMATION
  Report Type: Report from Study
  Country: JP (occurrence: JP)
  Receive Date: 20120705
  Receipt Date: 20121115
  Transmission Date: 20130627
  Serious: Yes (Life-Threatening, Hospitalization, Other)
  Sender: FDA-Public Use
  Company Number: JP-CELGENEUS-087-50794-12070078

PATIENT
  Age: 74 Year
  Sex: Male
  Weight: 63 kg

DRUGS (72)
  1. VIDAZA [Suspect]
     Indication: MYELODYSPLASTIC SYNDROME
     Dosage: 75 Milligram
     Route: 041
     Dates: start: 20111110, end: 20111111
  2. VIDAZA [Suspect]
     Dosage: 75 Milligram
     Route: 041
     Dates: start: 20111114, end: 20111115
  3. VIDAZA [Suspect]
     Dosage: 75 Milligram
     Route: 041
     Dates: start: 20111209, end: 20111214
  4. VIDAZA [Suspect]
     Dosage: 100 Milligram
     Route: 041
     Dates: start: 20120104, end: 20120109
  5. VIDAZA [Suspect]
     Dosage: 100 Milligram
     Route: 041
     Dates: start: 20120206, end: 20120210
  6. VIDAZA [Suspect]
     Dosage: 100 Milligram
     Route: 041
     Dates: start: 20120312, end: 20120312
  7. VIDAZA [Suspect]
     Dosage: 100 Milligram
     Route: 041
     Dates: start: 20120330, end: 20120330
  8. BLOOD [Concomitant]
     Indication: CARDIAC FAILURE CHRONIC
     Route: 041
     Dates: start: 20111209, end: 20111209
  9. OXYGEN [Concomitant]
     Indication: CARDIAC FAILURE CHRONIC
     Route: 055
     Dates: start: 20111209, end: 20111209
  10. POLLAKISU [Concomitant]
     Indication: DRUG USE FOR UNKNOWN INDICATION
     Route: 065
     Dates: end: 20111207
  11. POLLAKISU [Concomitant]
     Route: 065
     Dates: start: 20120120, end: 20120330
  12. PROMAC [Concomitant]
     Indication: DRUG USE FOR UNKNOWN INDICATION
     Route: 065
     Dates: end: 20120330
  13. POLYMIXIN B SULFATE [Concomitant]
     Indication: DRUG USE FOR UNKNOWN INDICATION
     Route: 065
     Dates: end: 20120330
  14. FUNGIZONE [Concomitant]
     Indication: DRUG USE FOR UNKNOWN INDICATION
     Route: 065
     Dates: end: 20120330
  15. BIOFERMIN [Concomitant]
     Indication: DRUG USE FOR UNKNOWN INDICATION
     Route: 065
     Dates: end: 20120330
  16. ARTIST [Concomitant]
     Indication: DRUG USE FOR UNKNOWN INDICATION
     Route: 065
     Dates: end: 20120330
  17. ZYLORIC [Concomitant]
     Indication: DRUG USE FOR UNKNOWN INDICATION
     Route: 065
     Dates: end: 20120330
  18. KALIMATE [Concomitant]
     Indication: DRUG USE FOR UNKNOWN INDICATION
     Route: 065
     Dates: start: 20111102, end: 20111113
  19. KALIMATE [Concomitant]
     Route: 065
     Dates: start: 20111211, end: 20120330
  20. LASIX [Concomitant]
     Indication: DRUG USE FOR UNKNOWN INDICATION
     Route: 065
     Dates: start: 20111117, end: 20120330
  21. PROCTOSEDYL [Concomitant]
     Indication: DRUG USE FOR UNKNOWN INDICATION
     Route: 065
     Dates: start: 20111117, end: 20120330
  22. OXINORM [Concomitant]
     Indication: DRUG USE FOR UNKNOWN INDICATION
     Route: 065
     Dates: start: 20111122, end: 20111201
  23. OXINORM [Concomitant]
     Route: 065
     Dates: start: 20120111, end: 20120219
  24. FENTOS [Concomitant]
     Indication: DRUG USE FOR UNKNOWN INDICATION
     Route: 065
     Dates: start: 20111128, end: 20111201
  25. FENTOS [Concomitant]
     Route: 065
     Dates: start: 20120113, end: 20120201
  26. OMEGACIN [Concomitant]
     Indication: DRUG USE FOR UNKNOWN INDICATION
     Route: 065
     Dates: start: 20111111, end: 20111116
  27. PRODIF [Concomitant]
     Indication: DRUG USE FOR UNKNOWN INDICATION
     Route: 065
     Dates: start: 20111109, end: 20111116
  28. PRODIF [Concomitant]
     Route: 065
     Dates: start: 20111201, end: 20111208
  29. PRODIF [Concomitant]
     Route: 065
     Dates: start: 20111223, end: 20120104
  30. VENILON [Concomitant]
     Indication: DRUG USE FOR UNKNOWN INDICATION
     Route: 065
     Dates: start: 20111114, end: 20111116
  31. VANCOMYCIN HYDROCHLORIDE [Concomitant]
     Indication: DRUG USE FOR UNKNOWN INDICATION
     Route: 065
     Dates: start: 20111114, end: 20111122
  32. VANCOMYCIN HYDROCHLORIDE [Concomitant]
     Route: 065
     Dates: start: 20120315, end: 20120325
  33. BFLUID [Concomitant]
     Indication: DRUG USE FOR UNKNOWN INDICATION
     Route: 065
     Dates: start: 20111116, end: 20111121
  34. BFLUID [Concomitant]
     Route: 065
     Dates: start: 20111219, end: 20120106
  35. NEUTROGIN [Concomitant]
     Indication: DRUG USE FOR UNKNOWN INDICATION
     Route: 065
     Dates: start: 20111116, end: 20111117
  36. FUNGUARD [Concomitant]
     Indication: DRUG USE FOR UNKNOWN INDICATION
     Route: 065
     Dates: start: 20111116, end: 20111125
  37. ZOSYN [Concomitant]
     Indication: DRUG USE FOR UNKNOWN INDICATION
     Route: 065
     Dates: start: 20111116, end: 20111124
  38. ZOSYN [Concomitant]
     Route: 065
     Dates: start: 20120319, end: 20120326
  39. ELINEOPA [Concomitant]
     Indication: DRUG USE FOR UNKNOWN INDICATION
     Route: 065
     Dates: start: 20111122, end: 20111218
  40. ELINEOPA [Concomitant]
     Route: 065
     Dates: start: 20120317, end: 20120331
  41. CIPROFLOXACIN [Concomitant]
     Indication: DRUG USE FOR UNKNOWN INDICATION
     Route: 065
     Dates: start: 20111122, end: 20111201
  42. SOLU-CORTEF [Concomitant]
     Indication: DRUG USE FOR UNKNOWN INDICATION
     Route: 065
     Dates: start: 20111122, end: 20111128
  43. ASPARA POTASSIUM [Concomitant]
     Indication: DRUG USE FOR UNKNOWN INDICATION
     Route: 065
     Dates: start: 20111125, end: 20111128
  44. PREDONINE [Concomitant]
     Indication: DRUG USE FOR UNKNOWN INDICATION
     Route: 065
     Dates: start: 20111129, end: 20120111
  45. PREDONINE [Concomitant]
     Route: 065
     Dates: start: 20120112, end: 20120330
  46. FIRSTCIN [Concomitant]
     Indication: DRUG USE FOR UNKNOWN INDICATION
     Route: 065
     Dates: start: 20111201, end: 20111205
  47. MINOCYCLINE HYDROCHLORIDE [Concomitant]
     Indication: DRUG USE FOR UNKNOWN INDICATION
     Route: 065
     Dates: start: 20111208, end: 20111216
  48. CEFTAZIDIME HYDRATE [Concomitant]
     Indication: DRUG USE FOR UNKNOWN INDICATION
     Route: 065
     Dates: start: 20111208, end: 20111219
  49. ADONA [Concomitant]
     Indication: DRUG USE FOR UNKNOWN INDICATION
     Route: 065
     Dates: start: 20111210, end: 20111218
  50. ADONA [Concomitant]
     Route: 065
     Dates: start: 20120113, end: 20120202
  51. TRANSAMIN [Concomitant]
     Indication: DRUG USE FOR UNKNOWN INDICATION
     Route: 065
     Dates: start: 20111214, end: 20111218
  52. TRANSAMIN [Concomitant]
     Route: 065
     Dates: start: 20120113, end: 20120202
  53. NAVOBAN [Concomitant]
     Indication: DRUG USE FOR UNKNOWN INDICATION
     Route: 065
     Dates: start: 20111110, end: 20111111
  54. NAVOBAN [Concomitant]
     Route: 065
     Dates: start: 20111114, end: 20111115
  55. NAVOBAN [Concomitant]
     Route: 065
     Dates: start: 20111209, end: 20111214
  56. NAVOBAN [Concomitant]
     Route: 065
     Dates: start: 20120104, end: 20120110
  57. NAVOBAN [Concomitant]
     Route: 065
     Dates: start: 20120312, end: 20120312
  58. NAVOBAN [Concomitant]
     Route: 065
     Dates: start: 20120330, end: 20120330
  59. DAIKENCHUTO [Concomitant]
     Indication: DRUG USE FOR UNKNOWN INDICATION
     Route: 065
     Dates: start: 20120213, end: 20120330
  60. DIHYDROCODEINE PHOSPHATE [Concomitant]
     Indication: DRUG USE FOR UNKNOWN INDICATION
     Route: 065
     Dates: start: 20120321, end: 20120331
  61. BAKTAR [Concomitant]
     Indication: DRUG USE FOR UNKNOWN INDICATION
     Route: 065
     Dates: start: 20120314, end: 20120328
  62. MUCOSOLVAN L [Concomitant]
     Indication: DRUG USE FOR UNKNOWN INDICATION
     Route: 065
     Dates: start: 20120316, end: 20120330
  63. EXJADE [Concomitant]
     Indication: DRUG USE FOR UNKNOWN INDICATION
     Route: 065
     Dates: start: 20120130, end: 20120212
  64. CEFEPIME HYDROCHLORIDE [Concomitant]
     Indication: DRUG USE FOR UNKNOWN INDICATION
     Route: 065
     Dates: start: 20110212, end: 20120220
  65. FINIBAX [Concomitant]
     Indication: DRUG USE FOR UNKNOWN INDICATION
     Route: 065
     Dates: start: 20120220, end: 20120302
  66. FINIBAX [Concomitant]
     Route: 065
     Dates: start: 20120314, end: 20120319
  67. VENOGLOBULIN-IH [Concomitant]
     Indication: DRUG USE FOR UNKNOWN INDICATION
     Route: 065
     Dates: start: 20120314, end: 20120316
  68. CIPROXAN [Concomitant]
     Indication: DRUG USE FOR UNKNOWN INDICATION
     Route: 065
     Dates: start: 20120326, end: 20120328
  69. SOL-MELCORT [Concomitant]
     Indication: DRUG USE FOR UNKNOWN INDICATION
     Route: 065
     Dates: start: 20120328, end: 20120331
  70. MEROPEN [Concomitant]
     Indication: DRUG USE FOR UNKNOWN INDICATION
     Route: 065
     Dates: start: 20120328, end: 20120331
  71. MAGMITT [Concomitant]
     Indication: DRUG USE FOR UNKNOWN INDICATION
     Route: 065
     Dates: start: 20111110, end: 20120330
  72. MAGMITT [Concomitant]
     Route: 065
     Dates: start: 20120120, end: 20120330

REACTIONS (13)
  - Pneumonia [Unknown]
  - Anal fissure [Recovering/Resolving]
  - Anal fissure [Recovering/Resolving]
  - Muscle haemorrhage [Recovered/Resolved]
  - Constipation [Recovering/Resolving]
  - Pneumonia [Recovering/Resolving]
  - Platelet count decreased [Not Recovered/Not Resolved]
  - Constipation [Recovering/Resolving]
  - Anaemia [Not Recovered/Not Resolved]
  - White blood cell count increased [Not Recovered/Not Resolved]
  - Febrile neutropenia [Recovered/Resolved]
  - Cardiac failure chronic [Not Recovered/Not Resolved]
  - Febrile neutropenia [Recovered/Resolved]
